FAERS Safety Report 13757508 (Version 2)
Quarter: 2017Q3

REPORT INFORMATION
  Report Type: Report from Study
  Country: US (occurrence: US)
  Receive Date: 20170717
  Receipt Date: 20170824
  Transmission Date: 20171127
  Serious: Yes (Hospitalization, Disabling)
  Sender: FDA-Public Use
  Company Number: US-AMGEN-USACT2016150422

PATIENT
  Age: 35 Year
  Sex: Male
  Weight: 89.6 kg

DRUGS (22)
  1. ACYCLOVIR. [Concomitant]
     Active Substance: ACYCLOVIR
     Indication: SKIN LESION
     Dosage: UNK
  2. LYRICA [Concomitant]
     Active Substance: PREGABALIN
     Dosage: UNK
  3. TAMSULOSIN [Concomitant]
     Active Substance: TAMSULOSIN
     Dosage: UNK
  4. IBRUTINIB [Suspect]
     Active Substance: IBRUTINIB
     Indication: PLASMA CELL MYELOMA
     Dosage: 840 MG, QD (EVERY DAY FOR 28 DAYS)
     Route: 048
     Dates: start: 20160929, end: 20161017
  5. AMBIEN [Concomitant]
     Active Substance: ZOLPIDEM TARTRATE
     Dosage: UNK
  6. COLACE [Concomitant]
     Active Substance: DOCUSATE SODIUM
     Dosage: UNK
  7. IMITREX [Concomitant]
     Active Substance: SUMATRIPTAN SUCCINATE
     Dosage: UNK
  8. SEROQUEL [Concomitant]
     Active Substance: QUETIAPINE FUMARATE
     Dosage: UNK
  9. DEXAMETHASONE. [Suspect]
     Active Substance: DEXAMETHASONE
     Indication: PLASMA CELL MYELOMA
     Dosage: 10 MG, D 1, 2, 8, 9, 15, 16, 22, 23.
     Route: 048
     Dates: start: 20160929
  10. CLONAZEPAM. [Concomitant]
     Active Substance: CLONAZEPAM
     Dosage: UNK
  11. DURAGESIC [Concomitant]
     Active Substance: FENTANYL
     Dosage: UNK
  12. SERTRALINE [Concomitant]
     Active Substance: SERTRALINE HYDROCHLORIDE
     Dosage: UNK
  13. ALLOPURINOL. [Concomitant]
     Active Substance: ALLOPURINOL
     Dosage: UNK
  14. BACLOFEN. [Concomitant]
     Active Substance: BACLOFEN
     Dosage: UNK
  15. VITAMIN D [Concomitant]
     Active Substance: CHOLECALCIFEROL
     Dosage: UNK
  16. CARFILZOMIB [Suspect]
     Active Substance: CARFILZOMIB
     Indication: PLASMA CELL MYELOMA
     Dosage: 27 MG/M2, D 1, 2, 8, 9, 15,16
     Route: 042
     Dates: start: 20161013
  17. METOPROLOL TARTRATE. [Concomitant]
     Active Substance: METOPROLOL TARTRATE
     Dosage: UNK
  18. POTASSIUM [Concomitant]
     Active Substance: POTASSIUM
     Dosage: UNK
  19. IBRUTINIB [Suspect]
     Active Substance: IBRUTINIB
     Dosage: 840 MG, QD
     Route: 048
     Dates: start: 20161027
  20. LACTULOSE. [Concomitant]
     Active Substance: LACTULOSE
     Dosage: UNK
  21. LORAZEPAM. [Concomitant]
     Active Substance: LORAZEPAM
     Dosage: UNK
  22. OXYCODONE [Concomitant]
     Active Substance: OXYCODONE
     Dosage: UNK

REACTIONS (4)
  - Fall [Recovered/Resolved]
  - Dizziness [Recovered/Resolved]
  - Muscular weakness [Not Recovered/Not Resolved]
  - Sinusitis [Recovered/Resolved]

NARRATIVE: CASE EVENT DATE: 20161016
